FAERS Safety Report 17279676 (Version 2)
Quarter: 2020Q1

REPORT INFORMATION
  Report Type: Spontaneous
  Country: JP (occurrence: JP)
  Receive Date: 20200116
  Receipt Date: 20200205
  Transmission Date: 20200409
  Serious: Yes (Death, Life-Threatening, Other)
  Sender: FDA-Public Use
  Company Number: JP-JAZZ-2020-JP-000443

PATIENT
  Age: 66 Year
  Sex: Male
  Weight: 47.7 kg

DRUGS (2)
  1. FUTHAN [Concomitant]
     Active Substance: NAFAMOSTAT MESYLATE
     Indication: PRODUCT USED FOR UNKNOWN INDICATION
     Dosage: UNK
     Dates: start: 20191130, end: 20191217
  2. DEFITELIO [Suspect]
     Active Substance: DEFIBROTIDE SODIUM
     Indication: VENOOCCLUSIVE LIVER DISEASE
     Dosage: 25 MG/KG, QD
     Route: 042
     Dates: start: 20191205, end: 20191217

REACTIONS (5)
  - Off label use [Unknown]
  - Multiple organ dysfunction syndrome [Fatal]
  - Haemophagocytic lymphohistiocytosis [Fatal]
  - Lower gastrointestinal haemorrhage [Recovering/Resolving]
  - Acute myeloid leukaemia [Fatal]

NARRATIVE: CASE EVENT DATE: 20191205
